FAERS Safety Report 17255096 (Version 1)
Quarter: 2020Q1

REPORT INFORMATION
  Report Type: Spontaneous
  Country: TR (occurrence: TR)
  Receive Date: 20200109
  Receipt Date: 20200109
  Transmission Date: 20200409
  Serious: Yes (Death, Hospitalization, Other)
  Sender: FDA-Public Use
  Company Number: TR-NOVAST LABORATORIES LTD.-2019NOV000320

PATIENT
  Age: 3 Month
  Sex: Female
  Weight: 5.15 kg

DRUGS (1)
  1. CLOBETASOL PROPIONATE. [Suspect]
     Active Substance: CLOBETASOL PROPIONATE
     Indication: DERMATITIS DIAPER
     Dosage: 10 TUBES OF 25 GRAMS FOR 2 MONTHS, 5-6 TIMES A DAY
     Route: 061

REACTIONS (4)
  - Cushing^s syndrome [Unknown]
  - Product use issue [Unknown]
  - Cytomegalovirus infection [Fatal]
  - Hepatic steatosis [Fatal]
